FAERS Safety Report 18849903 (Version 1)
Quarter: 2021Q1

REPORT INFORMATION
  Report Type: Report from Study
  Country: US (occurrence: US)
  Receive Date: 20210205
  Receipt Date: 20210205
  Transmission Date: 20210420
  Serious: Yes (Hospitalization, Other)
  Sender: FDA-Public Use
  Company Number: US-B.I. PHARMACEUTICALS,INC./RIDGEFIELD-2021-BI-080065

PATIENT
  Age: 83 Year
  Sex: Male

DRUGS (1)
  1. OFEV [Suspect]
     Active Substance: NINTEDANIB
     Indication: IDIOPATHIC PULMONARY FIBROSIS
     Dosage: 150 MG BY MOUTH ONCE DAILY
     Route: 048
     Dates: start: 201807

REACTIONS (3)
  - Tremor [Not Recovered/Not Resolved]
  - Pneumonia [Recovering/Resolving]
  - Lung neoplasm malignant [Not Recovered/Not Resolved]
